FAERS Safety Report 17065983 (Version 1)
Quarter: 2019Q4

REPORT INFORMATION
  Report Type: Spontaneous
  Country: US (occurrence: US)
  Receive Date: 20191122
  Receipt Date: 20191122
  Transmission Date: 20200122
  Serious: No
  Sender: FDA-Public Use
  Company Number: US-PERRIGO-19US006787

PATIENT
  Age: 83 Year
  Sex: Female
  Weight: 68.03 kg

DRUGS (3)
  1. METAMUCIL                          /00091301/ [Concomitant]
     Active Substance: PSYLLIUM HUSK
     Indication: CONSTIPATION
     Dosage: UNK
     Route: 065
  2. POLYETHYLENE GLYCOL 3350. [Suspect]
     Active Substance: POLYETHYLENE GLYCOL 3350
     Indication: CONSTIPATION
     Dosage: APPROXIMATELY 12.75 TO 17 G, QD
     Route: 048
     Dates: start: 20190415, end: 2019
  3. POLYETHYLENE GLYCOL 3350. [Suspect]
     Active Substance: POLYETHYLENE GLYCOL 3350
     Dosage: APPROXIMATELY 12.75 TO 17 G, QD
     Route: 048
     Dates: start: 201905

REACTIONS (3)
  - Underdose [Not Recovered/Not Resolved]
  - Diarrhoea [Recovered/Resolved]
  - Incorrect product administration duration [Recovered/Resolved]

NARRATIVE: CASE EVENT DATE: 201904
